FAERS Safety Report 15803339 (Version 7)
Quarter: 2019Q2

REPORT INFORMATION
  Report Type: Report from Study
  Country: US (occurrence: US)
  Receive Date: 20190109
  Receipt Date: 20190620
  Transmission Date: 20190711
  Serious: Yes (Hospitalization, Other)
  Sender: FDA-Public Use
  Company Number: US-PFIZER INC-2019000330

PATIENT
  Age: 59 Year
  Sex: Female

DRUGS (4)
  1. IBRANCE [Suspect]
     Active Substance: PALBOCICLIB
     Indication: BREAST CANCER FEMALE
     Dosage: 125 MG, CYCLIC (EVERY DAY/21 DAYS ON, 7 DAYS OFF)
     Route: 048
     Dates: start: 20181220, end: 20190101
  2. IBRANCE [Suspect]
     Active Substance: PALBOCICLIB
     Dosage: 125 MG, CYCLIC (ONCE DAILY 21 DAYS OF A 28 DAY)
     Route: 048
     Dates: start: 20190109
  3. LETROZOLE. [Concomitant]
     Active Substance: LETROZOLE
     Dosage: UNK
  4. XGEVA [Concomitant]
     Active Substance: DENOSUMAB
     Dosage: UNK

REACTIONS (14)
  - Fatigue [Unknown]
  - Abdominal distension [Unknown]
  - Haematochezia [Unknown]
  - Epistaxis [Unknown]
  - Anaemia [Unknown]
  - Condition aggravated [Unknown]
  - Pneumonia [Recovering/Resolving]
  - Dyspepsia [Unknown]
  - Flatulence [Unknown]
  - Neuropathy peripheral [Recovering/Resolving]
  - Rectal haemorrhage [Unknown]
  - Gastrointestinal haemorrhage [Unknown]
  - Skin disorder [Recovering/Resolving]
  - Musculoskeletal chest pain [Unknown]

NARRATIVE: CASE EVENT DATE: 2018
